FAERS Safety Report 18476467 (Version 2)
Quarter: 2020Q4

REPORT INFORMATION
  Report Type: Spontaneous
  Country: MX (occurrence: MX)
  Receive Date: 20201106
  Receipt Date: 20201128
  Transmission Date: 20210114
  Serious: Yes (Other)
  Sender: FDA-Public Use
  Company Number: MX-TAKEDA-MX201918232

PATIENT
  Age: 8 Year
  Sex: Male
  Weight: 30.7 kg

DRUGS (3)
  1. ELAPRASE [Suspect]
     Active Substance: IDURSULFASE
     Indication: MUCOPOLYSACCHARIDOSIS II
     Dosage: 2 MILLIGRAM PER MILLILITRE, 6 MG/3 ML(2 MG/ML), 2 VIALS 1X/WEEK
     Route: 042
     Dates: start: 201707
  2. ELAPRASE [Suspect]
     Active Substance: IDURSULFASE
     Dosage: 2 DOSAGE FORM
     Route: 042
     Dates: start: 20200130
  3. ELAPRASE [Suspect]
     Active Substance: IDURSULFASE
     Dosage: 2 DOSAGE FORM
     Route: 042
     Dates: start: 20171109

REACTIONS (6)
  - Product dose omission issue [Not Recovered/Not Resolved]
  - Product availability issue [Not Recovered/Not Resolved]
  - Pyrexia [Unknown]
  - Suspected COVID-19 [Unknown]
  - Inappropriate schedule of product administration [Unknown]
  - Inability to afford medication [Unknown]

NARRATIVE: CASE EVENT DATE: 20190530
